FAERS Safety Report 4998461-2 (Version None)
Quarter: 2006Q2

REPORT INFORMATION
  Report Type: 
  Country: None (occurrence: None)
  Receive Date: 20060510
  Receipt Date: 20060428
  Transmission Date: 20061013
  Serious: Yes (Death, Hospitalization)
  Sender: FDA-Public Use
  Company Number: LK-GLAXOSMITHKLINE-B0423054A

PATIENT
  Age: 6 Year
  Sex: Male

DRUGS (2)
  1. ALBENDAZOLE [Suspect]
  2. DIETHYLCARBAMAZINE CITRATE [Suspect]

REACTIONS (1)
  - ASPHYXIA [None]
